FAERS Safety Report 8381824-5 (Version None)
Quarter: 2012Q2

REPORT INFORMATION
  Report Type: 
  Country: None (occurrence: None)
  Receive Date: 20120522
  Receipt Date: 20120522
  Transmission Date: 20120825
  Serious: Yes (Life-Threatening)
  Sender: FDA-Public Use
  Company Number: None

PATIENT
  Age: 36 Year
  Sex: Female
  Weight: 61.6892 kg

DRUGS (2)
  1. YAZ [Suspect]
     Indication: ENDOMETRIOSIS
     Dosage: ONE/TWO CONTINUOUS/MISSED PO
     Route: 048
     Dates: start: 20050101, end: 20120507
  2. YAZ [Suspect]
     Indication: ENDOMETRIOSIS
     Dosage: ONE/TWO CONTINUOUS/MISSED PO
     Route: 048

REACTIONS (1)
  - CEREBROVASCULAR ACCIDENT [None]
